FAERS Safety Report 8468812-5 (Version None)
Quarter: 2012Q2

REPORT INFORMATION
  Report Type: 
  Country: None (occurrence: None)
  Receive Date: 20120626
  Receipt Date: 20120615
  Transmission Date: 20120825
  Serious: Yes (Other)
  Sender: FDA-Public Use
  Company Number: JP-VERTEX PHARMACEUTICALS INC.-AE-2012-007470

PATIENT
  Age: 64 Year
  Sex: Female

DRUGS (11)
  1. TELAVIC (TELAPREVIR) [Suspect]
     Indication: HEPATITIS C
     Route: 048
     Dates: start: 20120312, end: 20120516
  2. RIBAVIRIN [Concomitant]
     Route: 048
     Dates: start: 20120603
  3. PEGINTERFERON ALFA-2B [Concomitant]
     Indication: HEPATITIS C
     Route: 058
     Dates: start: 20120312, end: 20120318
  4. RIBAVIRIN [Concomitant]
     Indication: HEPATITIS C
     Route: 048
     Dates: start: 20120312, end: 20120401
  5. TELAVIC (TELAPREVIR) [Suspect]
     Route: 048
     Dates: start: 20120517, end: 20120602
  6. RIBAVIRIN [Concomitant]
     Route: 048
     Dates: start: 20120402, end: 20120409
  7. PEGINTERFERON ALFA-2B [Concomitant]
     Route: 058
     Dates: start: 20120507
  8. SELBEX [Concomitant]
     Route: 048
     Dates: start: 20120313
  9. PEGINTERFERON ALFA-2B [Concomitant]
     Route: 058
     Dates: start: 20120319, end: 20120401
  10. RIBAVIRIN [Concomitant]
     Route: 048
     Dates: start: 20120416, end: 20120513
  11. PEGINTERFERON ALFA-2B [Concomitant]
     Route: 058
     Dates: start: 20120402, end: 20120423

REACTIONS (1)
  - NEUTROPHIL COUNT DECREASED [None]
